FAERS Safety Report 8997840 (Version 1)
Quarter: 2013Q1

REPORT INFORMATION
  Report Type: Spontaneous
  Country: JP (occurrence: JP)
  Receive Date: 20130104
  Receipt Date: 20130104
  Transmission Date: 20140127
  Serious: Yes (Death)
  Sender: FDA-Public Use
  Company Number: JP-GLAXOSMITHKLINE-B0855436A

PATIENT
  Age: 66 Year
  Sex: Female

DRUGS (2)
  1. SAMTIREL [Suspect]
     Indication: PNEUMOCYSTIS JIROVECII PNEUMONIA
     Route: 048
  2. BENAMBAX [Concomitant]
     Indication: PNEUMOCYSTIS JIROVECII PNEUMONIA
     Route: 042

REACTIONS (3)
  - Death [Fatal]
  - Acute respiratory distress syndrome [Fatal]
  - Diarrhoea [Fatal]
